FAERS Safety Report 10092604 (Version 1)
Quarter: 2014Q2

REPORT INFORMATION
  Report Type: Spontaneous
  Country: US (occurrence: US)
  Receive Date: 20140421
  Receipt Date: 20140421
  Transmission Date: 20141212
  Serious: No
  Sender: FDA-Public Use
  Company Number: US-SANOFI-AVENTIS-2013SA051745

PATIENT
  Age: 65 Year
  Sex: Male
  Weight: 81 kg

DRUGS (3)
  1. ALLEGRA [Suspect]
     Indication: NASAL CONGESTION
     Dosage: TAKEN FROM:2 WEEKS AGO
     Route: 048
     Dates: start: 20130421, end: 20130430
  2. ALLEGRA [Suspect]
     Indication: HYPERSENSITIVITY
     Dosage: TAKEN FROM:2 WEEKS AGO
     Route: 048
     Dates: start: 20130421, end: 20130430
  3. LEVOCETIRIZINE [Concomitant]

REACTIONS (1)
  - Drug ineffective [Unknown]
